FAERS Safety Report 18023772 (Version 2)
Quarter: 2020Q3

REPORT INFORMATION
  Report Type: Report from Study
  Country: US (occurrence: US)
  Receive Date: 20200715
  Receipt Date: 20200717
  Transmission Date: 20201103
  Serious: Yes (Death)
  Sender: FDA-Public Use
  Company Number: US-TAIHO ONCOLOGY  INC-EU-2020-02506

PATIENT
  Age: 82 Year
  Sex: Male

DRUGS (12)
  1. METOPROL TAR [Concomitant]
  2. VITAMIN D3 [Concomitant]
     Active Substance: CHOLECALCIFEROL
  3. EPINEPHRINE POW [Concomitant]
  4. MAGNESIUM [Concomitant]
     Active Substance: MAGNESIUM
  5. ATORVASTATIN [Concomitant]
     Active Substance: ATORVASTATIN
  6. LEVETIRACETAM. [Concomitant]
     Active Substance: LEVETIRACETAM
  7. TYLENOL [Concomitant]
     Active Substance: ACETAMINOPHEN
  8. ASPIRIN. [Concomitant]
     Active Substance: ASPIRIN
  9. NITROGLY [Concomitant]
  10. LONSURF [Suspect]
     Active Substance: TIPIRACIL HYDROCHLORIDE\TRIFLURIDINE
     Indication: RECTAL CANCER
     Dosage: CYCLE UNKNOWN
     Route: 048
     Dates: start: 20200622
  11. LUTEIN [Concomitant]
     Active Substance: LUTEIN
  12. PEPCID [Concomitant]
     Active Substance: FAMOTIDINE

REACTIONS (1)
  - Death [Fatal]

NARRATIVE: CASE EVENT DATE: 20200706
